FAERS Safety Report 4847560-4 (Version None)
Quarter: 2005Q4

REPORT INFORMATION
  Report Type: 
  Country: None (occurrence: None)
  Receive Date: 20051207
  Receipt Date: 20051130
  Transmission Date: 20060501
  Serious: Yes (Death, Hospitalization)
  Sender: FDA-Public Use
  Company Number: US-AVENTIS-200519956US

PATIENT
  Sex: Male
  Weight: 104.55 kg

DRUGS (2)
  1. LOVENOX [Suspect]
     Indication: THROMBOSIS
     Dosage: DOSE: UNKNOWN
     Dates: start: 20050910, end: 20050929
  2. LASIX [Concomitant]
     Indication: FLUID RETENTION
     Dosage: DOSE: UNKNOWN

REACTIONS (1)
  - PANCREATIC CARCINOMA [None]
